FAERS Safety Report 8163261-1 (Version None)
Quarter: 2012Q1

REPORT INFORMATION
  Report Type: 
  Country: None (occurrence: None)
  Receive Date: 20120224
  Receipt Date: 20110302
  Transmission Date: 20120608
  Serious: No
  Sender: FDA-Public Use
  Company Number: US-PFIZER INC-K201100224

PATIENT
  Age: 85 Year
  Sex: Female
  Weight: 58.957 kg

DRUGS (8)
  1. PLAVIX [Concomitant]
     Dosage: UNK
     Route: 048
     Dates: start: 20050101
  2. LIPITOR [Concomitant]
     Dosage: UNK
     Route: 048
     Dates: start: 20050101
  3. FLECTOR [Suspect]
     Indication: BACK PAIN
     Dosage: 1 PATCH, Q12H
     Route: 061
     Dates: start: 20110223, end: 20110227
  4. ASPIRIN [Concomitant]
     Dosage: UNK
     Route: 048
     Dates: start: 20050101
  5. FLECTOR [Suspect]
     Indication: SPINAL COLUMN STENOSIS
     Dosage: 1 PATCH, SINGLE
     Route: 061
     Dates: start: 20110302, end: 20110302
  6. METOPROLOL [Concomitant]
     Dosage: UNK
     Route: 048
     Dates: start: 20050101
  7. FLECTOR [Suspect]
     Indication: INTERVERTEBRAL DISC PROTRUSION
  8. FUROSEMIDE [Concomitant]
     Dosage: UNK
     Route: 048
     Dates: start: 20050101

REACTIONS (1)
  - DIZZINESS [None]
